FAERS Safety Report 9586312 (Version 1)
Quarter: 2013Q4

REPORT INFORMATION
  Report Type: Spontaneous
  Country: US (occurrence: None)
  Receive Date: 20131001
  Receipt Date: 20131001
  Transmission Date: 20140711
  Serious: Yes (Hospitalization)
  Sender: FDA-Public Use
  Company Number: 201309-US-001394

PATIENT
  Age: 62 Year
  Sex: Female

DRUGS (1)
  1. DOCUSATE SODIUM [Suspect]
     Dosage: 4000 MILLIGRAM, 40 IN 24 HOURS, ORAL
     Route: 048

REACTIONS (9)
  - Self-medication [None]
  - Diarrhoea [None]
  - Angina pectoris [None]
  - Blood pressure decreased [None]
  - Heart rate increased [None]
  - Pulmonary oedema [None]
  - Hypertrophic cardiomyopathy [None]
  - Pulmonary congestion [None]
  - Mitral valve incompetence [None]
